FAERS Safety Report 23516497 (Version 2)
Quarter: 2024Q1

REPORT INFORMATION
  Report Type: Spontaneous
  Country: US (occurrence: US)
  Receive Date: 20240213
  Receipt Date: 20240328
  Transmission Date: 20240410
  Serious: No
  Sender: FDA-Public Use
  Company Number: US-JNJFOC-20240151710

PATIENT
  Age: 19 Year
  Sex: Male

DRUGS (1)
  1. MENS ROGAINE EXTRA STRENGTH [Suspect]
     Active Substance: MINOXIDIL
     Indication: Alopecia
     Dosage: 1ML AND TWICE DAILY.
     Route: 061
     Dates: start: 20231118, end: 20231203

REACTIONS (5)
  - Application site rash [Recovered/Resolved]
  - Application site exfoliation [Recovered/Resolved]
  - Application site erythema [Unknown]
  - Application site paraesthesia [Unknown]
  - Application site irritation [Unknown]

NARRATIVE: CASE EVENT DATE: 20231101
